FAERS Safety Report 5531354-0 (Version None)
Quarter: 2007Q4

REPORT INFORMATION
  Report Type: 
  Country: None (occurrence: None)
  Receive Date: 20071128
  Receipt Date: 20071109
  Transmission Date: 20080405
  Serious: Yes (Hospitalization)
  Sender: FDA-Public Use
  Company Number: ENT 2007-0189

PATIENT
  Age: 62 Year
  Sex: 0

DRUGS (8)
  1. COMTAN [Suspect]
     Dosage: ORAL
     Route: 048
  2. SELEGILINE HCL [Suspect]
     Dosage: ORAL
     Route: 048
  3. CLARITHROMYCIN [Suspect]
     Indication: NASOPHARYNGITIS
  4. ALCOHOL [Suspect]
     Dosage: ORAL
     Route: 048
  5. MADOPAR [Concomitant]
  6. SIFROL [Concomitant]
  7. FLOMOX [Concomitant]
  8. PL GRAN. [Concomitant]

REACTIONS (1)
  - DYSPNOEA [None]
